FAERS Safety Report 21602353 (Version 3)
Quarter: 2023Q2

REPORT INFORMATION
  Report Type: Spontaneous
  Country: US (occurrence: US)
  Receive Date: 20221116
  Receipt Date: 20230508
  Transmission Date: 20230722
  Serious: Yes (Hospitalization)
  Sender: FDA-Public Use
  Company Number: US-PFIZER INC-PV202200103448

PATIENT
  Age: 69 Year
  Sex: Male
  Weight: 69.388 kg

DRUGS (1)
  1. BRAFTOVI [Suspect]
     Active Substance: ENCORAFENIB
     Indication: Colon cancer
     Dosage: 75 MG, 4X/DAY
     Dates: start: 202211

REACTIONS (6)
  - Malaise [Not Recovered/Not Resolved]
  - Pruritus [Unknown]
  - Dizziness [Unknown]
  - Hernia [Unknown]
  - Rash [Unknown]
  - Acne [Unknown]
